FAERS Safety Report 20353619 (Version 1)
Quarter: 2022Q1

REPORT INFORMATION
  Report Type: Spontaneous
  Country: IN (occurrence: IN)
  Receive Date: 20220120
  Receipt Date: 20220120
  Transmission Date: 20220423
  Serious: Yes (Hospitalization, Congenital Anomaly, Other)
  Sender: FDA-Public Use
  Company Number: IN-WOCKHARDT BIO AG-2022WBA000002

PATIENT
  Weight: 2.4 kg

DRUGS (1)
  1. FLUOXETINE [Suspect]
     Active Substance: FLUOXETINE HYDROCHLORIDE
     Indication: Maternal exposure during pregnancy
     Dosage: UNK
     Route: 065

REACTIONS (1)
  - Pyloric stenosis [Recovered/Resolved]
